FAERS Safety Report 4579924-0 (Version None)
Quarter: 2005Q1

REPORT INFORMATION
  Report Type: 
  Country: None (occurrence: None)
  Receive Date: 20050214
  Receipt Date: 20050204
  Transmission Date: 20050727
  Serious: Yes (Hospitalization)
  Sender: FDA-Public Use
  Company Number: FR-SOLVAY-00205000455

PATIENT
  Age: 14930 Day
  Sex: Male

DRUGS (2)
  1. COVERSYL [Suspect]
     Indication: ILL-DEFINED DISORDER
     Dosage: DAILY DOSE: 4 MILLIGRAM(S)
     Route: 048
     Dates: start: 20040929, end: 20041114
  2. LAMISIL [Suspect]
     Indication: ILL-DEFINED DISORDER
     Dosage: DAILY DOSE: 1 DOSAGE FORM
     Route: 048
     Dates: start: 20040608, end: 20041114

REACTIONS (13)
  - CHILLS [None]
  - CYTOLYTIC HEPATITIS [None]
  - EOSINOPHILIA [None]
  - EYE DISORDER [None]
  - HEPATIC ENZYME INCREASED [None]
  - HYPERSENSITIVITY [None]
  - LYMPHADENOPATHY [None]
  - MUCOSAL EROSION [None]
  - PYREXIA [None]
  - RASH ERYTHEMATOUS [None]
  - RASH PAPULAR [None]
  - TOXIC SKIN ERUPTION [None]
  - URINARY TRACT INFECTION [None]
